FAERS Safety Report 12663129 (Version 2)
Quarter: 2016Q3

REPORT INFORMATION
  Report Type: Spontaneous
  Country: US (occurrence: US)
  Receive Date: 20160818
  Receipt Date: 20160906
  Transmission Date: 20161109
  Serious: Yes (Death)
  Sender: FDA-Public Use
  Company Number: PHEH2016US020418

PATIENT
  Age: 78 Year
  Sex: Male
  Weight: 107 kg

DRUGS (1)
  1. ENTRESTO [Suspect]
     Active Substance: SACUBITRIL\VALSARTAN
     Indication: CARDIAC FAILURE CONGESTIVE
     Dosage: 50 MG, BID
     Route: 048
     Dates: start: 20160704, end: 20160705

REACTIONS (2)
  - Cardiac failure congestive [Fatal]
  - Hypotension [Fatal]

NARRATIVE: CASE EVENT DATE: 20160704
